FAERS Safety Report 6701743-7 (Version None)
Quarter: 2010Q2

REPORT INFORMATION
  Report Type: 
  Country: None (occurrence: None)
  Receive Date: 20100429
  Receipt Date: 20100420
  Transmission Date: 20101027
  Serious: Yes (Other)
  Sender: FDA-Public Use
  Company Number: PHHY2010US25653

PATIENT
  Sex: Female

DRUGS (5)
  1. RECLAST [Suspect]
     Dosage: UNK
     Dates: start: 20090723
  2. LIPITOR [Suspect]
     Indication: BLOOD CHOLESTEROL
  3. CALCIUM WITH VITAMIN D [Concomitant]
  4. ALEVE (CAPLET) [Concomitant]
  5. SIMVALTA [Concomitant]
     Indication: FIBROMYALGIA

REACTIONS (9)
  - BLOOD CALCIUM INCREASED [None]
  - BONE DISORDER [None]
  - FIBROMYALGIA [None]
  - JOINT STIFFNESS [None]
  - MENTAL DISORDER [None]
  - MUSCULOSKELETAL DISCOMFORT [None]
  - OEDEMA PERIPHERAL [None]
  - PAIN [None]
  - PAIN IN EXTREMITY [None]
